FAERS Safety Report 4536656-2 (Version None)
Quarter: 2004Q4

REPORT INFORMATION
  Report Type: 
  Country: None (occurrence: None)
  Receive Date: 20041220
  Receipt Date: 20041209
  Transmission Date: 20050328
  Serious: Yes (Hospitalization)
  Sender: FDA-Public Use
  Company Number: 2004109491

PATIENT
  Age: 35 Year
  Sex: Male

DRUGS (1)
  1. DOSTINEX [Suspect]
     Indication: PITUITARY TUMOUR BENIGN
     Dosage: (0.5 MG, WEEKLY), ORAL
     Route: 048
     Dates: start: 19991105, end: 20041201

REACTIONS (2)
  - CONDITION AGGRAVATED [None]
  - PITUITARY TUMOUR BENIGN [None]
